FAERS Safety Report 5952424-9 (Version None)
Quarter: 2008Q4

REPORT INFORMATION
  Report Type: 
  Country: None (occurrence: None)
  Receive Date: 20081113
  Receipt Date: 20081030
  Transmission Date: 20090506
  Serious: Yes (Hospitalization)
  Sender: FDA-Public Use
  Company Number: FR-GENENTECH-229243

PATIENT
  Sex: Female
  Weight: 51 kg

DRUGS (3)
  1. PLACEBO [Suspect]
     Indication: PANCREATIC CARCINOMA METASTATIC
  2. ERLOTINIB [Suspect]
     Indication: PANCREATIC CARCINOMA METASTATIC
     Dosage: 100 MG, QD
     Route: 048
     Dates: start: 20060109
  3. GEMCITABINE HCL [Suspect]
     Indication: PANCREATIC CARCINOMA METASTATIC
     Dosage: 1510 MG, 1/WEEK
     Route: 042
     Dates: start: 20060109

REACTIONS (1)
  - SUBILEUS [None]
